FAERS Safety Report 20132681 (Version 2)
Quarter: 2021Q4

REPORT INFORMATION
  Report Type: Report from Study
  Country: PK (occurrence: PK)
  Receive Date: 20211130
  Receipt Date: 20211225
  Transmission Date: 20220303
  Serious: Yes (Other)
  Sender: FDA-Public Use
  Company Number: PK-NOVARTISPH-NVSC2021PK270928

PATIENT
  Age: 49 Year
  Sex: Male

DRUGS (4)
  1. SECUKINUMAB [Suspect]
     Active Substance: SECUKINUMAB
     Indication: Ankylosing spondylitis
     Dosage: 150 MG (1 VIAL AFTER 15 DAYS)
     Route: 058
     Dates: start: 20211105
  2. TONOFLEX P [Concomitant]
     Indication: Product used for unknown indication
     Dosage: UNK, QD (1+0+0)
     Route: 065
  3. COMFORTA [Concomitant]
     Indication: Product used for unknown indication
     Dosage: UNK, QD (1+0+0)
     Route: 065
  4. DELTACORTRIL [Concomitant]
     Active Substance: PREDNISOLONE
     Indication: Product used for unknown indication
     Dosage: 1 DOSAGE FORM, QD
     Route: 065

REACTIONS (1)
  - Renal amyloidosis [Not Recovered/Not Resolved]

NARRATIVE: CASE EVENT DATE: 20211101
